FAERS Safety Report 5022693-0 (Version None)
Quarter: 2006Q2

REPORT INFORMATION
  Report Type: 
  Country: None (occurrence: None)
  Receive Date: 20060609
  Receipt Date: 20060518
  Transmission Date: 20061013
  Serious: Yes (Life-Threatening)
  Sender: FDA-Public Use
  Company Number: JP-ROCHE-448489

PATIENT
  Age: 56 Year
  Sex: Male

DRUGS (10)
  1. PANALDINE [Suspect]
     Indication: ACUTE MYOCARDIAL INFARCTION
     Route: 048
     Dates: start: 20051025, end: 20060419
  2. OMEPRAL [Concomitant]
  3. LIPITOR [Concomitant]
  4. ARTIST [Concomitant]
  5. NU-LOTAN [Concomitant]
  6. ASPIRIN [Concomitant]
  7. ISOSORBIDE MONONITRATE [Concomitant]
  8. URSO [Concomitant]
     Dates: start: 20010323
  9. ZEFFIX [Concomitant]
     Dates: start: 20010323
  10. SHOUSAIKOTOU [Concomitant]
     Dates: start: 20010323

REACTIONS (5)
  - HEPATIC FUNCTION ABNORMAL [None]
  - HEPATITIS B [None]
  - LIVER DISORDER [None]
  - MALAISE [None]
  - PROTHROMBIN TIME SHORTENED [None]
